FAERS Safety Report 17681186 (Version 1)
Quarter: 2020Q2

REPORT INFORMATION
  Report Type: Spontaneous
  Country: IN (occurrence: IN)
  Receive Date: 20200417
  Receipt Date: 20200417
  Transmission Date: 20200714
  Serious: Yes (Death)
  Sender: FDA-Public Use
  Company Number: NVSC2020IN101712

PATIENT
  Age: 13 Year
  Sex: Male

DRUGS (2)
  1. PREDNISOLONE. [Suspect]
     Active Substance: PREDNISOLONE
     Indication: MYELITIS
     Dosage: UNK
     Route: 048
  2. METHYLPREDNISOLONE. [Suspect]
     Active Substance: METHYLPREDNISOLONE
     Indication: MYELITIS
     Dosage: UNK
     Route: 042

REACTIONS (11)
  - Abdominal distension [Fatal]
  - Headache [Fatal]
  - Generalised oedema [Fatal]
  - Malabsorption [Fatal]
  - Abdominal pain [Fatal]
  - Left ventricular failure [Fatal]
  - Hypotension [Fatal]
  - Product use in unapproved indication [Unknown]
  - Disseminated strongyloidiasis [Fatal]
  - Vomiting [Fatal]
  - Malnutrition [Fatal]
